FAERS Safety Report 24021741 (Version 1)
Quarter: 2024Q2

REPORT INFORMATION
  Report Type: Spontaneous
  Country: AU (occurrence: AU)
  Receive Date: 20240627
  Receipt Date: 20240627
  Transmission Date: 20240716
  Serious: No
  Sender: FDA-Public Use
  Company Number: AU-ROCHE-3478288

PATIENT
  Sex: Female

DRUGS (2)
  1. VABYSMO [Suspect]
     Active Substance: FARICIMAB\FARICIMAB-SVOA
     Indication: Product used for unknown indication
     Route: 065
     Dates: start: 20230321
  2. EYLEA [Concomitant]
     Active Substance: AFLIBERCEPT

REACTIONS (3)
  - Vitritis [Unknown]
  - Vitreous floaters [Unknown]
  - Anterior chamber cell [Unknown]
